FAERS Safety Report 19719766 (Version 1)
Quarter: 2021Q3

REPORT INFORMATION
  Report Type: Spontaneous
  Country: US (occurrence: US)
  Receive Date: 20210819
  Receipt Date: 20210819
  Transmission Date: 20211014
  Serious: No
  Sender: FDA-Public Use
  Company Number: None

PATIENT
  Age: 65 Year
  Sex: Male
  Weight: 124 kg

DRUGS (2)
  1. TOCILIZUMAB (TOCILIZUMAB 20MG/ML INJ, SOLN , 20ML) [Suspect]
     Active Substance: TOCILIZUMAB
     Indication: UPPER RESPIRATORY TRACT INFECTION
     Route: 042
     Dates: start: 20210811, end: 20210811
  2. TOCILIZUMAB (TOCILIZUMAB 20MG/ML INJ, SOLN , 20ML) [Suspect]
     Active Substance: TOCILIZUMAB
     Route: 042
     Dates: start: 20210812, end: 20210812

REACTIONS (2)
  - Death [None]
  - Respiratory depression [None]

NARRATIVE: CASE EVENT DATE: 20210817
